FAERS Safety Report 15154410 (Version 2)
Quarter: 2018Q3

REPORT INFORMATION
  Report Type: Report from Study
  Country: IT (occurrence: IT)
  Receive Date: 20180717
  Receipt Date: 20180917
  Transmission Date: 20181010
  Serious: Yes (Hospitalization)
  Sender: FDA-Public Use
  Company Number: IT-ALLERGAN-1835498US

PATIENT
  Age: 85 Year
  Sex: Female

DRUGS (1)
  1. ESCITALOPRAM OXALATE UNK [Suspect]
     Active Substance: ESCITALOPRAM OXALATE
     Indication: HYPOVITAMINOSIS
     Dosage: 35 GTT, UNK (IN TOTAL)
     Route: 048
     Dates: start: 20180530, end: 20180530

REACTIONS (3)
  - Depressed level of consciousness [Recovered/Resolved]
  - Product use in unapproved indication [Unknown]
  - Medication error [Unknown]

NARRATIVE: CASE EVENT DATE: 20180530
